FAERS Safety Report 24882127 (Version 2)
Quarter: 2025Q1

REPORT INFORMATION
  Report Type: Spontaneous
  Country: ES (occurrence: ES)
  Receive Date: 20250124
  Receipt Date: 20250313
  Transmission Date: 20250409
  Serious: Yes (Other)
  Sender: SAMSUNG BIOEPIS
  Company Number: None

PATIENT
  Age: 53 Year
  Sex: Male

DRUGS (7)
  1. IMRALDI [Suspect]
     Active Substance: ADALIMUMAB
     Indication: Psoriatic arthropathy
     Dosage: 2 PENS OF 0.4 ML;
     Route: 058
     Dates: start: 20240103, end: 20241008
  2. METHOTREXATE [Suspect]
     Active Substance: METHOTREXATE
     Indication: Psoriatic arthropathy
     Dosage: METOTREXATE WEEKLY WYETH 2.5 MG TABLETS, 24 TABLETS;
     Route: 048
     Dates: start: 20170629, end: 20240805
  3. AMLODIPINE BESYLATE\HYDROCHLOROTHIAZIDE\OLMESARTAN MEDOXOMIL [Concomitant]
     Active Substance: AMLODIPINE BESYLATE\HYDROCHLOROTHIAZIDE\OLMESARTAN MEDOXOMIL
     Indication: Product used for unknown indication
     Dosage: SEVIKAR HCT 40 MG/10 MG/12.5 MG FILM-COATED TABLETS, 28 TABLETS;
     Route: 048
     Dates: start: 20131118
  4. ROSUVASTATINA CINFA [Concomitant]
     Indication: Product used for unknown indication
     Dosage: ROSUVASTATIN CINFA 10 MG FILM-COATED TABLETS, 28 TABLETS;
     Route: 048
     Dates: start: 20230314
  5. ARAVA [Concomitant]
     Active Substance: LEFLUNOMIDE
     Indication: Product used for unknown indication
     Dosage: ARAVA 20 MG FILM-COATED TABLETS, 30 TABLETS (BOTTLE);
     Route: 048
     Dates: start: 20160209
  6. BRINTELLIX [Concomitant]
     Active Substance: VORTIOXETINE HYDROBROMIDE
     Indication: Product used for unknown indication
     Dosage: BRINTELLIX 10 MG FILM-COATED TABLETS, 28 TABLETS;
     Route: 048
  7. NOCTAMID [Concomitant]
     Indication: Product used for unknown indication
     Dosage: NOCTAMID 1 MG TABLETS, 30 TABLETS;
     Route: 048
     Dates: start: 20191209

REACTIONS (1)
  - Granulomatous dermatitis [Recovered/Resolved]

NARRATIVE: CASE EVENT DATE: 20240501
